FAERS Safety Report 9891087 (Version 2)
Quarter: 2014Q1

REPORT INFORMATION
  Report Type: Other
  Country: US (occurrence: US)
  Receive Date: 20140212
  Receipt Date: 20140212
  Transmission Date: 20141002
  Serious: No
  Sender: FDA-Public Use
  Company Number: US-ACORDA-ACO_38798_2013

PATIENT
  Sex: Female
  Weight: 102.95 kg

DRUGS (10)
  1. AMPYRA [Suspect]
     Indication: PRODUCT USED FOR UNKNOWN INDICATION
     Dosage: 10 MG, QD
     Route: 048
     Dates: start: 20120216
  2. AMPYRA [Suspect]
     Dosage: 10 MG, QD
     Route: 048
     Dates: start: 20120216
  3. REBIF [Suspect]
     Indication: PRODUCT USED FOR UNKNOWN INDICATION
     Dosage: 22 ?G, THREE TIMES WEEKLY
     Route: 058
  4. TEGRETOL [Suspect]
     Indication: PRODUCT USED FOR UNKNOWN INDICATION
     Dosage: 200 MG, PRN
     Route: 048
  5. NUVIGIL [Suspect]
     Indication: PRODUCT USED FOR UNKNOWN INDICATION
     Dosage: 250 MG, QD
     Route: 048
  6. ATENOLOL [Concomitant]
     Indication: PRODUCT USED FOR UNKNOWN INDICATION
     Dosage: 50 MG, QD
     Route: 048
  7. BENAZEPRIL [Concomitant]
     Indication: PRODUCT USED FOR UNKNOWN INDICATION
     Dosage: 40 MG, QD
     Route: 048
  8. GABAPENTIN [Concomitant]
     Indication: PRODUCT USED FOR UNKNOWN INDICATION
     Dosage: 800 MG, TID
     Route: 048
  9. NIFEDIPINE [Concomitant]
     Indication: PRODUCT USED FOR UNKNOWN INDICATION
     Dosage: 90 MG, QD
     Route: 048
  10. CYMBALTA [Concomitant]
     Indication: PRODUCT USED FOR UNKNOWN INDICATION
     Dosage: 60 MG, QD
     Route: 048

REACTIONS (1)
  - Trigeminal neuralgia [Recovering/Resolving]
